FAERS Safety Report 11388113 (Version 1)
Quarter: 2015Q3

REPORT INFORMATION
  Report Type: Spontaneous
  Country: FR (occurrence: FR)
  Receive Date: 20150817
  Receipt Date: 20150817
  Transmission Date: 20151125
  Serious: Yes (Hospitalization, Other)
  Sender: FDA-Public Use
  Company Number: FR-GUERBET LLC-1041137

PATIENT
  Age: 13 Year
  Sex: Female

DRUGS (5)
  1. DOTAREM [Suspect]
     Active Substance: GADOTERATE MEGLUMINE
     Indication: NUCLEAR MAGNETIC RESONANCE IMAGING ABDOMINAL
     Route: 042
     Dates: start: 20150710
  2. FOSFOMYCIN(FOSFOMYCIN) [Concomitant]
     Dates: start: 20150711, end: 20150713
  3. CEFOTAXIME [Concomitant]
     Active Substance: CEFOTAXIME SODIUM
  4. GENTAMICINE [Concomitant]
     Active Substance: GENTAMICIN
     Dates: start: 20150711, end: 20150713
  5. VIALEBEX(ALBUMIN HUMAN) [Concomitant]

REACTIONS (2)
  - Acute pulmonary oedema [Recovered/Resolved]
  - Angioedema [Recovered/Resolved]

NARRATIVE: CASE EVENT DATE: 20150711
